FAERS Safety Report 11497229 (Version 5)
Quarter: 2016Q3

REPORT INFORMATION
  Report Type: Report from Study
  Country: US (occurrence: US)
  Receive Date: 20150911
  Receipt Date: 20160818
  Transmission Date: 20161109
  Serious: Yes (Hospitalization)
  Sender: FDA-Public Use
  Company Number: US-PFIZER INC-2015297295

PATIENT
  Age: 19 Year
  Sex: Male
  Weight: 60 kg

DRUGS (35)
  1. DEXAMETHASONE. [Concomitant]
     Active Substance: DEXAMETHASONE
     Dosage: 5 MG/M2, PO BID ON DAYS 1-5 (COURSE A)
     Route: 048
  2. KEFLEX [Concomitant]
     Active Substance: CEPHALEXIN
     Indication: ACNE
     Dosage: 500 MG, 2X/DAY
     Route: 048
  3. DOCUSATE [Concomitant]
     Active Substance: DOCUSATE
     Indication: FAECES HARD
     Dosage: 100 MG, 2X/DAY
     Route: 048
     Dates: start: 20140428
  4. FLAGYL [Concomitant]
     Active Substance: METRONIDAZOLE\METRONIDAZOLE HYDROCHLORIDE
     Indication: CLOSTRIDIUM DIFFICILE INFECTION
     Dosage: 500 MG, 4X/DAY
     Route: 048
     Dates: start: 20140516, end: 20140530
  5. METHOTREXATE SODIUM. [Suspect]
     Active Substance: METHOTREXATE SODIUM
     Indication: ANAPLASTIC LARGE CELL LYMPHOMA T- AND NULL-CELL TYPES
     Dosage: 7.5-12MG ON DAY 1 (PROPHASE)
     Route: 037
     Dates: start: 20140430
  6. CYTARABINE. [Concomitant]
     Active Substance: CYTARABINE
     Indication: ANAPLASTIC LARGE CELL LYMPHOMA T- AND NULL-CELL TYPES
     Dosage: 15-24MG, ON DAY 1 (PROPHASE)
     Route: 037
     Dates: start: 20140430
  7. VP-16 [Concomitant]
     Active Substance: ETOPOSIDE
     Indication: ANAPLASTIC LARGE CELL LYMPHOMA T- AND NULL-CELL TYPES
     Dosage: 100 MG/M2 IV OVER 2 HOURS ON DAYS 4 AND 5 (COURSE A)
     Route: 042
  8. ONDANSETRON [Concomitant]
     Active Substance: ONDANSETRON
     Indication: PROPHYLAXIS OF NAUSEA AND VOMITING
     Dosage: 8 MG, AS NEEDED
     Dates: start: 20140428
  9. ZANTAC [Concomitant]
     Active Substance: RANITIDINE HYDROCHLORIDE
     Indication: DYSPEPSIA
     Dosage: 150 MG, 1X/DAY
     Route: 048
     Dates: start: 20140430
  10. TRAZODONE [Concomitant]
     Active Substance: TRAZODONE HYDROCHLORIDE
     Indication: INSOMNIA
     Dosage: 25 MG, ONCE A DAY AT BED TIME, AS NEEDED
     Route: 048
     Dates: start: 20140503
  11. CRIZOTINIB [Suspect]
     Active Substance: CRIZOTINIB
     Indication: ANAPLASTIC LARGE CELL LYMPHOMA T- AND NULL-CELL TYPES
     Dosage: 165 MG/M2, BID ON DAYS 1-21 (COURSE A, , CYCLE 1)
     Route: 048
     Dates: start: 20140503
  12. LEUCOVORIN /00566701/ [Concomitant]
     Active Substance: LEUCOVORIN
     Indication: ANAPLASTIC LARGE-CELL LYMPHOMA
     Dosage: 15 MG/M2/DOSE EVERY 6 HOURS UNTIL MTX LEVEL IS LESS THAN 0.1UM/L
     Route: 042
     Dates: start: 20140504
  13. HYDROCORTISONE. [Concomitant]
     Active Substance: HYDROCORTISONE
     Indication: ANAPLASTIC LARGE CELL LYMPHOMA T- AND NULL-CELL TYPES
     Dosage: 7.5-12MG, ON DAY 1 (PROPHASE)
     Route: 037
  14. DIPHENHYDRAMINE. [Concomitant]
     Active Substance: DIPHENHYDRAMINE
     Indication: PROPHYLAXIS OF NAUSEA AND VOMITING
     Dosage: 50 MG, AS NEEDED
     Route: 042
     Dates: start: 20140426
  15. PHENOL. [Concomitant]
     Active Substance: PHENOL
     Indication: OROPHARYNGEAL PAIN
     Dosage: 3 SPRAYS
     Route: 061
     Dates: start: 20140602, end: 20140602
  16. DOXORUBICIN HCL [Suspect]
     Active Substance: DOXORUBICIN HYDROCHLORIDE
     Indication: ANAPLASTIC LARGE CELL LYMPHOMA T- AND NULL-CELL TYPES
     Dosage: 25 MG/M2, OVER 1-15 MIN ON DAYS 4 AND 5 (COURSE B)
     Route: 042
     Dates: start: 20140527
  17. CYTARABINE. [Concomitant]
     Active Substance: CYTARABINE
     Dosage: 150 MG/M2, OVER 1-30 MINUTES Q12 HOURS ON DAYS 4 AND 5 (TOTAL 4 DOSES) COURSE A
     Route: 042
  18. DEXAMETHASONE. [Concomitant]
     Active Substance: DEXAMETHASONE
     Indication: ANAPLASTIC LARGE CELL LYMPHOMA T- AND NULL-CELL TYPES
     Dosage: 5 MG/M2, QD ON DAYS 1-2 AND BID ON DAYS 3-5 (PROPHASE)
     Route: 048
     Dates: start: 20140428
  19. IFOSFAMIDE. [Concomitant]
     Active Substance: IFOSFAMIDE
     Indication: ANAPLASTIC LARGE CELL LYMPHOMA T- AND NULL-CELL TYPES
     Dosage: 800 MG/M2, OVER 60 MIN ON DAYS 1-5
     Route: 042
  20. PROVERA [Concomitant]
     Active Substance: MEDROXYPROGESTERONE ACETATE
     Indication: UTERINE HAEMORRHAGE
     Dosage: 10 MG, 1X/DAY
     Route: 048
     Dates: start: 201405
  21. BACTRIM [Concomitant]
     Active Substance: SULFAMETHOXAZOLE\TRIMETHOPRIM
     Indication: PNEUMOCYSTIS JIROVECII PNEUMONIA
     Dosage: 160 MG, 2X/DAY ON MONDAY AND TUESDAY
     Route: 048
     Dates: start: 20140428
  22. PRILOSEC [Concomitant]
     Active Substance: OMEPRAZOLE MAGNESIUM
     Indication: PROPHYLAXIS
     Dosage: 20 MG, 1X/DAY
     Route: 048
     Dates: start: 20140506
  23. METHOTREXATE SODIUM. [Suspect]
     Active Substance: METHOTREXATE SODIUM
     Dosage: 3000 MG/M2, OVER 3 HOURS ON DAY 1 (COURSE A)
     Route: 042
     Dates: start: 20140503
  24. METHOTREXATE SODIUM. [Suspect]
     Active Substance: METHOTREXATE SODIUM
     Dosage: 3000 MG/M2, OVER 3 HOURS ON DAY 1 (COURSE B)
     Route: 042
  25. CYCLOPHOSPHAMIDE. [Concomitant]
     Active Substance: CYCLOPHOSPHAMIDE
     Dosage: 200 MG/M2 OVER 15-30 MINUTES ON DAYS 1-5 (COURSE B)
     Route: 042
  26. SCOPOLAMINE /00008701/ [Concomitant]
     Active Substance: SCOPOLAMINE
     Indication: PROPHYLAXIS OF NAUSEA AND VOMITING
     Dosage: 1 PATCH,EVERY 72 HOURS
     Route: 062
     Dates: start: 20140429
  27. HEPARIN [Concomitant]
     Active Substance: HEPARIN SODIUM
     Dosage: 10 UNITS/ML, 30 UNITS WAS 3 ML
     Dates: start: 20140501
  28. ATIVAN [Concomitant]
     Active Substance: LORAZEPAM
     Indication: PROPHYLAXIS OF NAUSEA AND VOMITING
     Dosage: 0.5 MG, AS NEEDED
  29. REGLAN [Concomitant]
     Active Substance: METOCLOPRAMIDE HYDROCHLORIDE
     Indication: PROPHYLAXIS OF NAUSEA AND VOMITING
     Dosage: 20 MG, AS NEEDED (PRN)
     Dates: start: 20140429
  30. MIRALAX [Concomitant]
     Active Substance: POLYETHYLENE GLYCOL 3350
     Indication: CONSTIPATION PROPHYLAXIS
     Dosage: 17 G, 1-3 TIMES PRN (AS NEEDED)
  31. CRIZOTINIB [Suspect]
     Active Substance: CRIZOTINIB
     Dosage: 165 MG/M2, 250 MG, TWICE PER DAY, ON DAYS 1-21
     Route: 048
     Dates: start: 20140524
  32. CYCLOPHOSPHAMIDE. [Concomitant]
     Active Substance: CYCLOPHOSPHAMIDE
     Indication: ANAPLASTIC LARGE CELL LYMPHOMA T- AND NULL-CELL TYPES
     Dosage: 200 MG/M2, OVER 15-30 MINUTES ON DAYS 1 AND 2 (PROPHASE)
     Route: 042
     Dates: start: 20140428
  33. DEXAMETHASONE. [Concomitant]
     Active Substance: DEXAMETHASONE
     Dosage: 5MG/M2 PO BID ON DAYS 1-5 (COURSE B)
     Route: 048
  34. NEULASTA [Concomitant]
     Active Substance: PEGFILGRASTIM
     Dosage: 6 MG, ONE TIME PER EACH COURSE
     Route: 058
     Dates: start: 20140509
  35. ROXICODONE [Concomitant]
     Active Substance: OXYCODONE HYDROCHLORIDE
     Indication: PAIN
     Dosage: 5 MG TO 7.5 MG, AS NEEDED
     Route: 048
     Dates: start: 20140430, end: 20140603

REACTIONS (2)
  - Stomatitis [Recovered/Resolved]
  - Tracheal inflammation [Recovered/Resolved]

NARRATIVE: CASE EVENT DATE: 20140604
